FAERS Safety Report 6155526-X (Version None)
Quarter: 2009Q2

REPORT INFORMATION
  Report Type: 
  Country: None (occurrence: None)
  Receive Date: 20090415
  Receipt Date: 20090331
  Transmission Date: 20091009
  Serious: Yes (Other)
  Sender: FDA-Public Use
  Company Number: GB-GENENTECH-276946

PATIENT
  Weight: 67.982 kg

DRUGS (9)
  1. XOLAIR [Suspect]
     Indication: ASTHMA
     Dosage: 150 A?G, Q2W
     Route: 058
  2. SERETIDE [Concomitant]
     Indication: DRUG USE FOR UNKNOWN INDICATION
  3. MONTELUKAST [Concomitant]
     Indication: DRUG USE FOR UNKNOWN INDICATION
  4. CETIRIZINE [Concomitant]
     Indication: DRUG USE FOR UNKNOWN INDICATION
  5. TERBUTALINE SULFATE [Concomitant]
     Indication: DRUG USE FOR UNKNOWN INDICATION
  6. NASONEX [Concomitant]
     Indication: DRUG USE FOR UNKNOWN INDICATION
  7. SALBUTAMOL [Concomitant]
     Indication: DRUG USE FOR UNKNOWN INDICATION
  8. AZITHROMYCIN [Concomitant]
     Indication: DRUG USE FOR UNKNOWN INDICATION
  9. TIOTROPIUM [Concomitant]
     Indication: DRUG USE FOR UNKNOWN INDICATION

REACTIONS (1)
  - DEEP VEIN THROMBOSIS [None]
